FAERS Safety Report 8424154-5 (Version None)
Quarter: 2012Q2

REPORT INFORMATION
  Report Type: 
  Country: None (occurrence: None)
  Receive Date: 20120608
  Receipt Date: 20120313
  Transmission Date: 20120825
  Serious: No
  Sender: FDA-Public Use
  Company Number: US-ASTRAZENECA-2012SE14115

PATIENT
  Age: 6 Year
  Sex: Female

DRUGS (1)
  1. PULMICORT FLEXHALER [Suspect]
     Dosage: 180/4.5, 1PUFF EVERY DAY.
     Route: 055

REACTIONS (2)
  - RESPIRATORY DISORDER [None]
  - OFF LABEL USE [None]
